FAERS Safety Report 8137475-0 (Version None)
Quarter: 2012Q1

REPORT INFORMATION
  Report Type: 
  Country: None (occurrence: None)
  Receive Date: 20120213
  Receipt Date: 20120206
  Transmission Date: 20120608
  Serious: Yes (Hospitalization, Other)
  Sender: FDA-Public Use
  Company Number: 2012SP006953

PATIENT
  Sex: Female

DRUGS (3)
  1. PEG-INTRON [Suspect]
     Indication: HEPATITIS C
     Dates: start: 20111228
  2. RIBAVIRIN [Suspect]
     Indication: HEPATITIS C
     Dates: start: 20111130
  3. BOCEPREVIR [Suspect]
     Indication: HEPATITIS C
     Dates: start: 20111228

REACTIONS (7)
  - HAEMOGLOBIN DECREASED [None]
  - DEHYDRATION [None]
  - AMNESIA [None]
  - ASTHENIA [None]
  - COLD-STIMULUS HEADACHE [None]
  - COUGH [None]
  - BLOOD SODIUM DECREASED [None]
